FAERS Safety Report 23763686 (Version 1)
Quarter: 2024Q2

REPORT INFORMATION
  Report Type: Spontaneous
  Country: US (occurrence: US)
  Receive Date: 20240419
  Receipt Date: 20240419
  Transmission Date: 20240716
  Serious: No
  Sender: FDA-Public Use
  Company Number: US-MYLANLABS-2024M1032734

PATIENT
  Sex: Female
  Weight: 40.82 kg

DRUGS (1)
  1. TYRVAYA [Suspect]
     Active Substance: VARENICLINE TARTRATE
     Indication: Dry eye
     Dosage: 0.03 MILLIGRAM, BID (ONE SPRAY TO EACH NOSTRIL TWICE DAILY)
     Route: 045
     Dates: start: 20240331

REACTIONS (2)
  - Drug ineffective [Unknown]
  - Device use issue [Unknown]
